FAERS Safety Report 24045143 (Version 1)
Quarter: 2024Q3

REPORT INFORMATION
  Report Type: Spontaneous
  Country: RU (occurrence: RU)
  Receive Date: 20240703
  Receipt Date: 20240703
  Transmission Date: 20241016
  Serious: Yes (Other)
  Sender: ROCHE
  Company Number: RU-ROCHE-10000010812

PATIENT
  Age: 66 Year
  Sex: Female

DRUGS (2)
  1. ATEZOLIZUMAB [Suspect]
     Active Substance: ATEZOLIZUMAB
     Indication: Breast cancer
     Dosage: ON DAY 1
     Route: 065
     Dates: start: 202010, end: 20221103
  2. PACLITAXEL [Suspect]
     Active Substance: PACLITAXEL
     Indication: Breast cancer
     Dosage: ON DAYS 1, 8, 15
     Route: 065
     Dates: start: 202010, end: 20201103

REACTIONS (2)
  - Polyneuropathy [Unknown]
  - Rash [Unknown]
